FAERS Safety Report 22205776 (Version 4)
Quarter: 2023Q2

REPORT INFORMATION
  Report Type: Spontaneous
  Country: US (occurrence: US)
  Receive Date: 20230413
  Receipt Date: 20230601
  Transmission Date: 20230721
  Serious: Yes (Other)
  Sender: FDA-Public Use
  Company Number: US-BIOCODEX2-2023000403

PATIENT
  Age: 1 Year
  Sex: Female
  Weight: 14.3 kg

DRUGS (9)
  1. DIACOMIT [Suspect]
     Active Substance: STIRIPENTOL
     Indication: Severe myoclonic epilepsy of infancy
     Dosage: TAKE 100 MG BY MOUTH TWICE DAILY.
     Route: 048
     Dates: start: 20221114
  2. DIACOMIT [Suspect]
     Active Substance: STIRIPENTOL
     Indication: Severe myoclonic epilepsy of infancy
     Dosage: 150 MG BY MOUTH TWICE DAILY
     Route: 048
     Dates: start: 20221114
  3. CLOBAZAM [Concomitant]
     Active Substance: CLOBAZAM
     Indication: Severe myoclonic epilepsy of infancy
     Dosage: 1.5ML TWO TIMES PER DAY
     Route: 048
  4. DEPAKOTE [Concomitant]
     Active Substance: DIVALPROEX SODIUM
     Indication: Product used for unknown indication
     Dosage: 750MG DAILY ? 3 PILLS IN THE AM, 3 IN THE EVENING
     Route: 048
     Dates: end: 20230330
  5. DEPAKOTE [Concomitant]
     Active Substance: DIVALPROEX SODIUM
     Indication: Product used for unknown indication
     Dosage: 625MG DAILY ? 2 PILLS IN THE AM, 3 IN THE EVENING
     Route: 048
     Dates: start: 20230331
  6. LEVOCARNITINE [Concomitant]
     Active Substance: LEVOCARNITINE
     Indication: Product used for unknown indication
     Dosage: 3ML ? TWO TIMES PER DAY
     Route: 048
  7. DIASTAT [Concomitant]
     Active Substance: DIAZEPAM
     Indication: Product used for unknown indication
     Route: 065
  8. DIASTAT [Concomitant]
     Active Substance: DIAZEPAM
     Indication: Product used for unknown indication
     Route: 054
  9. CLONAZEPAM [Concomitant]
     Active Substance: CLONAZEPAM
     Indication: Product used for unknown indication
     Dosage: TAKE 0.125 (HALF OF THE 0.25 PILL) TWICE/DAY
     Route: 065

REACTIONS (5)
  - Seizure [Recovered/Resolved]
  - Product preparation issue [Unknown]
  - Rhinovirus infection [Unknown]
  - Urinary tract infection [Unknown]
  - Confusional state [Recovering/Resolving]

NARRATIVE: CASE EVENT DATE: 20230330
